FAERS Safety Report 6389343-2 (Version None)
Quarter: 2009Q4

REPORT INFORMATION
  Report Type: 
  Country: None (occurrence: None)
  Receive Date: 20091006
  Receipt Date: 20090929
  Transmission Date: 20100525
  Serious: No
  Sender: FDA-Public Use
  Company Number: US-B.I. PHARMACEUTICALS,INC./RIDGEFIELD-2009-BP-09949BP

PATIENT
  Sex: Male

DRUGS (8)
  1. MICARDIS [Suspect]
     Indication: HYPERTENSION
     Dosage: 80 MG
     Route: 048
     Dates: start: 20090804, end: 20090827
  2. MICARDIS [Suspect]
     Indication: VENTRICULAR EXTRASYSTOLES
  3. MOBIC [Concomitant]
  4. TRAMADOL HCL [Concomitant]
  5. ASPIRIN [Concomitant]
  6. UNSPECIFIED ANTI-INFLAMMATORY [Concomitant]
  7. PROVISTAL [Concomitant]
  8. PRAVISTATIN [Concomitant]
     Dates: end: 20090827

REACTIONS (8)
  - ABDOMINAL DISTENSION [None]
  - BLOOD GLUCOSE INCREASED [None]
  - CHEST PAIN [None]
  - COUGH [None]
  - ERUCTATION [None]
  - INSOMNIA [None]
  - MUSCLE SPASMS [None]
  - NASAL CONGESTION [None]
